FAERS Safety Report 9472467 (Version 1)
Quarter: 2013Q3

REPORT INFORMATION
  Report Type: Spontaneous
  Country: US (occurrence: None)
  Receive Date: 20130821
  Receipt Date: 20130821
  Transmission Date: 20140515
  Serious: Yes (Hospitalization)
  Sender: FDA-Public Use
  Company Number: None

PATIENT
  Age: 67 Year
  Sex: Male
  Weight: 74.5 kg

DRUGS (14)
  1. DOCETAXEL [Suspect]
     Indication: PROSTATE CANCER
     Route: 048
     Dates: start: 20130115, end: 20130817
  2. BEVACIZUMAB [Suspect]
     Indication: PROSTATE CANCER
     Dosage: 2.5 MG DAILY PO
     Dates: end: 2003
  3. EVEROLIMUS [Suspect]
     Indication: PROSTATE CANCER
     Dosage: 2.5 MG DAILY PO
  4. TAXOTERE [Suspect]
     Indication: PROSTATE CANCER
     Dosage: 144 MG Q 3 WEEKS IVPB
     Route: 042
     Dates: start: 20130729
  5. IMODIUM [Concomitant]
  6. STOOL SOFTENER [Concomitant]
  7. LUPRON [Concomitant]
  8. OSCAL D [Concomitant]
  9. SIMVASTATIN [Concomitant]
  10. ACETAMINOPHEN [Concomitant]
  11. SYMBICORT [Concomitant]
  12. DECADRON [Concomitant]
  13. ZOFRAN [Concomitant]
  14. COMPAZINE [Concomitant]

REACTIONS (2)
  - Pneumonia [None]
  - Diarrhoea [None]
